FAERS Safety Report 21904646 (Version 1)
Quarter: 2023Q1

REPORT INFORMATION
  Report Type: Spontaneous
  Country: FR (occurrence: FR)
  Receive Date: 20230124
  Receipt Date: 20230124
  Transmission Date: 20230418
  Serious: Yes (Hospitalization)
  Sender: FDA-Public Use
  Company Number: None

PATIENT
  Age: 79 Year
  Sex: Male
  Weight: 83 kg

DRUGS (3)
  1. PAXLOVID [Suspect]
     Active Substance: NIRMATRELVIR\RITONAVIR
     Indication: COVID-19 treatment
     Dosage: 1 DF, 1X/DAY (100 MG, 150 MG)
     Route: 048
     Dates: start: 20221216, end: 20221221
  2. PFIZER-BIONTECH COVID-19 VACCINE, BIVALENT [Suspect]
     Active Substance: BNT162B2 OMICRON (BA.4/BA.5)\TOZINAMERAN
     Indication: COVID-19 immunisation
     Dosage: DOSE NUMBER UNKNOWN (BOOSTER), SINGLE
     Route: 030
     Dates: start: 20221214, end: 20221214
  3. ELIQUIS [Concomitant]
     Active Substance: APIXABAN
     Indication: Vascular graft thrombosis
     Dosage: 5 MG, 2X/DAY (EVERY 12 HOURS, MORNING AND EVENING)
     Route: 048
     Dates: start: 202107

REACTIONS (11)
  - Vascular purpura [Recovering/Resolving]
  - Arthralgia [Unknown]
  - Hyperleukocytosis [Unknown]
  - Gamma-glutamyltransferase increased [Unknown]
  - Haematuria [Unknown]
  - Proteinuria [Unknown]
  - Inflammation [Unknown]
  - Blood immunoglobulin A increased [Unknown]
  - Complement factor increased [Unknown]
  - Incorrect dose administered [Unknown]
  - Off label use [Unknown]

NARRATIVE: CASE EVENT DATE: 20221224
